FAERS Safety Report 22344562 (Version 2)
Quarter: 2023Q2

REPORT INFORMATION
  Report Type: Spontaneous
  Country: AU (occurrence: AU)
  Receive Date: 20230519
  Receipt Date: 20230602
  Transmission Date: 20230721
  Serious: Yes (Hospitalization, Other)
  Sender: FDA-Public Use
  Company Number: AU-TASMAN PHARMA, INC.-2023TSM00097

PATIENT
  Age: 42 Year
  Sex: Female
  Weight: 95 kg

DRUGS (186)
  1. CLOZAPINE [Suspect]
     Active Substance: CLOZAPINE
     Indication: Schizoaffective disorder
     Dosage: 125 MG
     Dates: start: 20100720, end: 20100728
  2. CLOZAPINE [Suspect]
     Active Substance: CLOZAPINE
     Dosage: 600 MG
     Dates: start: 20100729, end: 20100802
  3. CLOZAPINE [Suspect]
     Active Substance: CLOZAPINE
     Dosage: 400 MG
     Dates: start: 20100803, end: 20100809
  4. CLOZAPINE [Suspect]
     Active Substance: CLOZAPINE
     Dosage: 600 MG
     Dates: start: 20100825, end: 20100830
  5. CLOZAPINE [Suspect]
     Active Substance: CLOZAPINE
     Dosage: 500 MG
     Dates: start: 20100922, end: 20100924
  6. CLOZAPINE [Suspect]
     Active Substance: CLOZAPINE
     Dosage: 600 MG
     Dates: start: 20101206, end: 20101223
  7. CLOZAPINE [Suspect]
     Active Substance: CLOZAPINE
     Dosage: 350 MG
     Dates: start: 20110128, end: 20110206
  8. CLOZAPINE [Suspect]
     Active Substance: CLOZAPINE
     Dosage: 400 MG
     Dates: start: 20110222, end: 20110228
  9. CLOZAPINE [Suspect]
     Active Substance: CLOZAPINE
     Dosage: 425 MG
     Dates: start: 20110405, end: 20110415
  10. CLOZAPINE [Suspect]
     Active Substance: CLOZAPINE
     Dosage: 200 MG
     Dates: start: 20110428, end: 20110504
  11. CLOZAPINE [Suspect]
     Active Substance: CLOZAPINE
     Dosage: 600 MG
     Dates: start: 20120725, end: 20120730
  12. CLOZAPINE [Suspect]
     Active Substance: CLOZAPINE
     Dosage: 400 MG
     Dates: start: 20120913, end: 20120918
  13. CLOZAPINE [Suspect]
     Active Substance: CLOZAPINE
     Dosage: 400 MG
     Dates: start: 20160419, end: 20160504
  14. CLOZAPINE [Suspect]
     Active Substance: CLOZAPINE
     Dosage: 175 MG
     Dates: start: 20160517, end: 20160523
  15. CLOZAPINE [Suspect]
     Active Substance: CLOZAPINE
     Dosage: 350 MG
     Dates: start: 20160622, end: 20160708
  16. CLOZAPINE [Suspect]
     Active Substance: CLOZAPINE
     Dosage: 350 MG
     Dates: start: 20160802, end: 20161107
  17. CLOZAPINE [Suspect]
     Active Substance: CLOZAPINE
     Dosage: UNK
     Dates: start: 20161121, end: 20161121
  18. CLOZAPINE [Suspect]
     Active Substance: CLOZAPINE
     Dosage: 50 MG
     Dates: start: 20161122, end: 20161205
  19. CLOZAPINE [Suspect]
     Active Substance: CLOZAPINE
     Dosage: 350 MG
     Dates: start: 20161206, end: 20170430
  20. CLOZAPINE [Suspect]
     Active Substance: CLOZAPINE
     Dosage: 400 MG
     Dates: start: 20170523, end: 20170525
  21. CLOZAPINE [Suspect]
     Active Substance: CLOZAPINE
     Dosage: 12.5 MG
     Dates: start: 20170529, end: 20170606
  22. CLOZAPINE [Suspect]
     Active Substance: CLOZAPINE
     Dosage: 200 MG
     Dates: start: 20170607, end: 20170612
  23. CLOZAPINE [Suspect]
     Active Substance: CLOZAPINE
     Dosage: 300 MG
     Dates: start: 20170621, end: 20170627
  24. CLOZAPINE [Suspect]
     Active Substance: CLOZAPINE
     Dosage: 350 MG
     Dates: start: 20170628, end: 20170703
  25. CLOZAPINE [Suspect]
     Active Substance: CLOZAPINE
     Dosage: 375 MG
     Dates: start: 20170704, end: 20170710
  26. CLOZAPINE [Suspect]
     Active Substance: CLOZAPINE
     Dosage: 400 MG
     Dates: start: 20170711, end: 20171002
  27. CLOZAPINE [Suspect]
     Active Substance: CLOZAPINE
     Dosage: 325 MG
     Dates: start: 20171003, end: 20171024
  28. CLOZAPINE [Suspect]
     Active Substance: CLOZAPINE
     Dosage: 250 MG
     Dates: start: 20171025, end: 20171120
  29. CLOZAPINE [Suspect]
     Active Substance: CLOZAPINE
     Dosage: 50 MG
     Dates: start: 20171219, end: 20180105
  30. CLOZAPINE [Suspect]
     Active Substance: CLOZAPINE
     Dosage: 300 MG
     Dates: start: 20180424, end: 20180502
  31. CLOZAPINE [Suspect]
     Active Substance: CLOZAPINE
     Dosage: 350 MG
     Dates: start: 20180503, end: 20180521
  32. CLOZAPINE [Suspect]
     Active Substance: CLOZAPINE
     Dosage: 425 MG
     Dates: start: 20180522, end: 20180528
  33. CLOZAPINE [Suspect]
     Active Substance: CLOZAPINE
     Dosage: 450 MG
     Dates: start: 20180529, end: 20180604
  34. CLOZAPINE [Suspect]
     Active Substance: CLOZAPINE
     Dosage: 500 MG
     Dates: start: 20180612, end: 20180618
  35. CLOZAPINE [Suspect]
     Active Substance: CLOZAPINE
     Dosage: UNK
     Dates: start: 20180622, end: 20180625
  36. CLOZAPINE [Suspect]
     Active Substance: CLOZAPINE
     Dosage: 100 MG
     Dates: start: 20180626, end: 20180703
  37. CLOZAPINE [Suspect]
     Active Substance: CLOZAPINE
     Dosage: 400 MG
     Dates: start: 20180704, end: 20180709
  38. CLOZAPINE [Suspect]
     Active Substance: CLOZAPINE
     Dosage: 500 MG
     Dates: start: 20180717, end: 20180807
  39. CLOZAPINE [Suspect]
     Active Substance: CLOZAPINE
     Dosage: 575 MG
     Dates: start: 20180808, end: 20180903
  40. CLOZAPINE [Suspect]
     Active Substance: CLOZAPINE
     Dosage: 600 MG
     Dates: start: 20180904, end: 20180917
  41. CLOZAPINE [Suspect]
     Active Substance: CLOZAPINE
     Dosage: UNK
     Dates: start: 20180921, end: 20180924
  42. CLOZAPINE [Suspect]
     Active Substance: CLOZAPINE
     Dosage: 50 MG
     Dates: start: 20180925, end: 20181001
  43. CLOZAPINE [Suspect]
     Active Substance: CLOZAPINE
     Dosage: 200 MG
     Dates: start: 20181002, end: 20181015
  44. CLOZAPINE [Suspect]
     Active Substance: CLOZAPINE
     Dosage: 525 MG
     Dates: start: 20181024, end: 20181029
  45. CLOZAPINE [Suspect]
     Active Substance: CLOZAPINE
     Dosage: 600 MG
     Dates: start: 20181030, end: 20181108
  46. CLOZAPINE [Suspect]
     Active Substance: CLOZAPINE
     Dosage: UNK
     Dates: start: 20181115, end: 20181115
  47. CLOZAPINE [Suspect]
     Active Substance: CLOZAPINE
     Dosage: 50 MG
     Dates: start: 20181116, end: 20181126
  48. CLOZAPINE [Suspect]
     Active Substance: CLOZAPINE
     Dosage: 175 MG
     Dates: start: 20181127, end: 20181211
  49. CLOZAPINE [Suspect]
     Active Substance: CLOZAPINE
     Dosage: 425 MG
     Dates: start: 20181212, end: 20181219
  50. CLOZAPINE [Suspect]
     Active Substance: CLOZAPINE
     Dosage: 500 MG
     Dates: start: 20181220, end: 20181223
  51. CLOZAPINE [Suspect]
     Active Substance: CLOZAPINE
     Indication: Schizoaffective disorder
     Dosage: 600 MG
     Dates: start: 20181224, end: 20190107
  52. CLOZAPINE [Suspect]
     Active Substance: CLOZAPINE
     Dosage: UNK
     Dates: start: 20190111, end: 20190114
  53. CLOZAPINE [Suspect]
     Active Substance: CLOZAPINE
     Dosage: 600 MG
     Dates: start: 20190115, end: 20190812
  54. CLOZAPINE [Suspect]
     Active Substance: CLOZAPINE
     Dosage: 600 MG
     Dates: start: 20190903, end: 20191007
  55. CLOZAPINE [Suspect]
     Active Substance: CLOZAPINE
     Dosage: 600 MG
     Dates: start: 20191211, end: 20191214
  56. CLOZAPINE [Suspect]
     Active Substance: CLOZAPINE
     Dosage: 500 MG
     Dates: start: 20220530, end: 20220627
  57. CLOZAPINE [Suspect]
     Active Substance: CLOZAPINE
     Dosage: 450 MG
     Dates: start: 20220628, end: 20220703
  58. CLOZAPINE [Suspect]
     Active Substance: CLOZAPINE
     Dosage: 450 MG
     Dates: start: 20220727, end: 20220804
  59. CLOZAPINE [Suspect]
     Active Substance: CLOZAPINE
     Dosage: 500 MG
     Dates: start: 20221117, end: 2022
  60. CLOZAPINE [Suspect]
     Active Substance: CLOZAPINE
     Dosage: 500 MG
     Dates: start: 20221225, end: 20221231
  61. CLOZAPINE [Suspect]
     Active Substance: CLOZAPINE
     Dosage: 500 MG, 1X/DAY, NOCTE (AT NIGHT)
     Dates: start: 20230421, end: 20230423
  62. CLOZAPINE [Suspect]
     Active Substance: CLOZAPINE
     Dosage: UNK (PRESUMED TITRATION)
     Dates: start: 2023, end: 2023
  63. CLOZAPINE [Suspect]
     Active Substance: CLOZAPINE
     Dosage: 500 MG (10 ML OF 50 MG/ML), 1X/DAY, AT NIGHT
     Route: 048
     Dates: start: 2023
  64. CLOZAPINE [Suspect]
     Active Substance: CLOZAPINE
     Indication: Schizoaffective disorder
     Dosage: 500 MG
     Dates: start: 20100810, end: 20100816
  65. CLOZAPINE [Suspect]
     Active Substance: CLOZAPINE
     Dosage: 600 MG
     Dates: start: 20100817, end: 20100824
  66. CLOZAPINE [Suspect]
     Active Substance: CLOZAPINE
     Dosage: 600 MG
     Dates: start: 20101230, end: 20110110
  67. CLOZAPINE [Suspect]
     Active Substance: CLOZAPINE
     Dosage: 175 MG
     Dates: start: 20110121, end: 20110127
  68. CLOZAPINE [Suspect]
     Active Substance: CLOZAPINE
     Dosage: 350 MG
     Dates: start: 20110207, end: 20110213
  69. CLOZAPINE [Suspect]
     Active Substance: CLOZAPINE
     Dosage: 375 MG
     Dates: start: 20110214, end: 20110221
  70. CLOZAPINE [Suspect]
     Active Substance: CLOZAPINE
     Dosage: 425 MG
     Dates: start: 20110301, end: 20110404
  71. CLOZAPINE [Suspect]
     Active Substance: CLOZAPINE
     Dosage: 375 MG
     Dates: start: 20110505, end: 20110511
  72. CLOZAPINE [Suspect]
     Active Substance: CLOZAPINE
     Dosage: 500 MG
     Dates: start: 20110512, end: 20110816
  73. CLOZAPINE [Suspect]
     Active Substance: CLOZAPINE
     Dosage: UNK
     Dates: start: 20110819, end: 20110824
  74. CLOZAPINE [Suspect]
     Active Substance: CLOZAPINE
     Dosage: 350 MG
     Dates: start: 20110825, end: 20110918
  75. CLOZAPINE [Suspect]
     Active Substance: CLOZAPINE
     Dosage: 500 MG
     Dates: start: 20110919, end: 20110926
  76. CLOZAPINE [Suspect]
     Active Substance: CLOZAPINE
     Dosage: 50 MG
     Dates: start: 20111007, end: 20111012
  77. CLOZAPINE [Suspect]
     Active Substance: CLOZAPINE
     Dosage: 175 MG
     Dates: start: 20111013, end: 20111016
  78. CLOZAPINE [Suspect]
     Active Substance: CLOZAPINE
     Dosage: 250 MG
     Dates: start: 20111017, end: 20111023
  79. CLOZAPINE [Suspect]
     Active Substance: CLOZAPINE
     Dosage: 450 MG
     Dates: start: 20111024, end: 20111030
  80. CLOZAPINE [Suspect]
     Active Substance: CLOZAPINE
     Dosage: 500 MG
     Dates: start: 20111031, end: 20111102
  81. CLOZAPINE [Suspect]
     Active Substance: CLOZAPINE
     Dosage: UNK
     Dates: start: 20111105, end: 20111109
  82. CLOZAPINE [Suspect]
     Active Substance: CLOZAPINE
     Dosage: 400 MG
     Dates: start: 20111115, end: 20111121
  83. CLOZAPINE [Suspect]
     Active Substance: CLOZAPINE
     Dosage: 500 MG
     Dates: start: 20111122, end: 20111218
  84. CLOZAPINE [Suspect]
     Active Substance: CLOZAPINE
     Dosage: UNK
     Dates: start: 20111225, end: 20120102
  85. CLOZAPINE [Suspect]
     Active Substance: CLOZAPINE
     Dosage: 300 MG
     Dates: start: 20120103, end: 20120109
  86. CLOZAPINE [Suspect]
     Active Substance: CLOZAPINE
     Dosage: 550 MG
     Dates: start: 20120110, end: 20120113
  87. CLOZAPINE [Suspect]
     Active Substance: CLOZAPINE
     Dosage: UNK
     Dates: start: 20120116, end: 20120623
  88. CLOZAPINE [Suspect]
     Active Substance: CLOZAPINE
     Dosage: 600 MG
     Dates: start: 20120731, end: 20120831
  89. CLOZAPINE [Suspect]
     Active Substance: CLOZAPINE
     Dosage: UNK
     Dates: start: 20120904, end: 20120904
  90. CLOZAPINE [Suspect]
     Active Substance: CLOZAPINE
     Dosage: 50 MG
     Dates: start: 20140701, end: 20140707
  91. CLOZAPINE [Suspect]
     Active Substance: CLOZAPINE
     Dosage: 100 MG
     Dates: start: 20140708, end: 20140714
  92. CLOZAPINE [Suspect]
     Active Substance: CLOZAPINE
     Dosage: 275 MG
     Dates: start: 20140715, end: 20140721
  93. CLOZAPINE [Suspect]
     Active Substance: CLOZAPINE
     Dosage: 400 MG
     Dates: start: 20140722, end: 201508
  94. CLOZAPINE [Suspect]
     Active Substance: CLOZAPINE
     Dosage: 12.5 MG
     Dates: start: 20150820, end: 20150826
  95. CLOZAPINE [Suspect]
     Active Substance: CLOZAPINE
     Dosage: 100 MG
     Dates: start: 20150827, end: 20150902
  96. CLOZAPINE [Suspect]
     Active Substance: CLOZAPINE
     Dosage: 200 MG
     Dates: start: 20150903, end: 20150908
  97. CLOZAPINE [Suspect]
     Active Substance: CLOZAPINE
     Dosage: 375 MG
     Dates: start: 20150909, end: 20150915
  98. CLOZAPINE [Suspect]
     Active Substance: CLOZAPINE
     Dosage: 300 MG
     Dates: start: 20150916, end: 20150928
  99. CLOZAPINE [Suspect]
     Active Substance: CLOZAPINE
     Dosage: 400 MG
     Dates: start: 20150929, end: 20151026
  100. CLOZAPINE [Suspect]
     Active Substance: CLOZAPINE
     Dosage: 12.5 MG
     Dates: start: 20160508, end: 20160516
  101. CLOZAPINE [Suspect]
     Active Substance: CLOZAPINE
     Dosage: 350 MG
     Dates: start: 20160524, end: 20160621
  102. CLOZAPINE [Suspect]
     Active Substance: CLOZAPINE
     Dosage: 350 MG
     Dates: start: 20160709, end: 20160801
  103. CLOZAPINE [Suspect]
     Active Substance: CLOZAPINE
     Dosage: 400 MG
     Dates: start: 20170501, end: 20170522
  104. CLOZAPINE [Suspect]
     Active Substance: CLOZAPINE
     Dosage: 200 MG
     Dates: start: 20170613, end: 20170620
  105. CLOZAPINE [Suspect]
     Active Substance: CLOZAPINE
     Dosage: 125 MG
     Dates: start: 20171121, end: 20171218
  106. CLOZAPINE [Suspect]
     Active Substance: CLOZAPINE
     Dosage: 12.5 MG
     Dates: start: 20180327, end: 20180328
  107. CLOZAPINE [Suspect]
     Active Substance: CLOZAPINE
     Dosage: 25 MG
     Dates: start: 20180410, end: 20180417
  108. CLOZAPINE [Suspect]
     Active Substance: CLOZAPINE
     Dosage: 450 TO 475 MG
     Dates: start: 20180605, end: 20180611
  109. CLOZAPINE [Suspect]
     Active Substance: CLOZAPINE
     Dosage: 450 MG
     Dates: start: 20180710, end: 20180716
  110. CLOZAPINE [Suspect]
     Active Substance: CLOZAPINE
     Dosage: 200 MG
     Dates: start: 20181016, end: 20181023
  111. CLOZAPINE [Suspect]
     Active Substance: CLOZAPINE
     Dosage: 600 MG
     Dates: start: 20190813, end: 20190902
  112. CLOZAPINE [Suspect]
     Active Substance: CLOZAPINE
     Dosage: 600 MG
     Dates: start: 20191008, end: 20191018
  113. CLOZAPINE [Suspect]
     Active Substance: CLOZAPINE
     Dosage: 150 MG
     Dates: start: 20191024, end: 20191030
  114. CLOZAPINE [Suspect]
     Active Substance: CLOZAPINE
     Indication: Schizoaffective disorder
     Dosage: 450 MG
     Dates: start: 20191031, end: 20191121
  115. CLOZAPINE [Suspect]
     Active Substance: CLOZAPINE
     Dosage: 600 MG
     Dates: start: 20191122, end: 20191210
  116. CLOZAPINE [Suspect]
     Active Substance: CLOZAPINE
     Dosage: UNK
     Dates: start: 20191218, end: 20191218
  117. CLOZAPINE [Suspect]
     Active Substance: CLOZAPINE
     Dosage: 600 MG
     Dates: start: 20191219, end: 20200105
  118. CLOZAPINE [Suspect]
     Active Substance: CLOZAPINE
     Dosage: 550 MG
     Dates: start: 20200106, end: 20200113
  119. CLOZAPINE [Suspect]
     Active Substance: CLOZAPINE
     Dosage: 600 MG
     Dates: start: 20200114, end: 20200320
  120. CLOZAPINE [Suspect]
     Active Substance: CLOZAPINE
     Dosage: 150 MG
     Dates: start: 20200326, end: 20200331
  121. CLOZAPINE [Suspect]
     Active Substance: CLOZAPINE
     Dosage: 300 MG
     Dates: start: 20200401, end: 20200406
  122. CLOZAPINE [Suspect]
     Active Substance: CLOZAPINE
     Dosage: 450 MG
     Dates: start: 20200407, end: 20201005
  123. CLOZAPINE [Suspect]
     Active Substance: CLOZAPINE
     Dosage: 550 MG
     Dates: start: 20201006, end: 20210222
  124. CLOZAPINE [Suspect]
     Active Substance: CLOZAPINE
     Dosage: 500 MG
     Dates: start: 20210223, end: 20220411
  125. CLOZAPINE [Suspect]
     Active Substance: CLOZAPINE
     Indication: Schizoaffective disorder
     Dosage: 550 MG
     Dates: start: 20100831, end: 20100921
  126. CLOZAPINE [Suspect]
     Active Substance: CLOZAPINE
     Dosage: 12.5 MG
     Dates: start: 20101029, end: 20101104
  127. CLOZAPINE [Suspect]
     Active Substance: CLOZAPINE
     Dosage: 125 MG
     Dates: start: 20101105, end: 20101111
  128. CLOZAPINE [Suspect]
     Active Substance: CLOZAPINE
     Dosage: 200 MG
     Dates: start: 20101112, end: 20101114
  129. CLOZAPINE [Suspect]
     Active Substance: CLOZAPINE
     Dosage: 275 MG
     Dates: start: 20101115, end: 20101121
  130. CLOZAPINE [Suspect]
     Active Substance: CLOZAPINE
     Dosage: 450 MG
     Dates: start: 20101122, end: 20101129
  131. CLOZAPINE [Suspect]
     Active Substance: CLOZAPINE
     Dosage: 600 MG
     Dates: start: 20101130, end: 20101205
  132. CLOZAPINE [Suspect]
     Active Substance: CLOZAPINE
     Dosage: 600 MG
     Dates: start: 20101224, end: 20101229
  133. CLOZAPINE [Suspect]
     Active Substance: CLOZAPINE
     Dosage: 25 MG
     Dates: start: 20110117, end: 20110120
  134. CLOZAPINE [Suspect]
     Active Substance: CLOZAPINE
     Dosage: 12.5 MG
     Dates: start: 20110419, end: 20110427
  135. CLOZAPINE [Suspect]
     Active Substance: CLOZAPINE
     Dosage: 12.5 MG
     Dates: start: 20111005, end: 20111006
  136. CLOZAPINE [Suspect]
     Active Substance: CLOZAPINE
     Dosage: 100 MG
     Dates: start: 20111110, end: 20111114
  137. CLOZAPINE [Suspect]
     Active Substance: CLOZAPINE
     Dosage: 150 MG
     Dates: start: 20120624, end: 20120628
  138. CLOZAPINE [Suspect]
     Active Substance: CLOZAPINE
     Dosage: 275 MG
     Dates: start: 20120629, end: 20120705
  139. CLOZAPINE [Suspect]
     Active Substance: CLOZAPINE
     Dosage: 450 MG
     Dates: start: 20120706, end: 20120712
  140. CLOZAPINE [Suspect]
     Active Substance: CLOZAPINE
     Dosage: 500 MG
     Dates: start: 20120713, end: 20120719
  141. CLOZAPINE [Suspect]
     Active Substance: CLOZAPINE
     Dosage: 550 MG
     Dates: start: 20120720, end: 20120724
  142. CLOZAPINE [Suspect]
     Active Substance: CLOZAPINE
     Dosage: 62.5 MG
     Dates: start: 20120905, end: 20120912
  143. CLOZAPINE [Suspect]
     Active Substance: CLOZAPINE
     Dosage: 400 MG
     Dates: start: 20151027, end: 20160418
  144. CLOZAPINE [Suspect]
     Active Substance: CLOZAPINE
     Dosage: 12.5 MG
     Dates: start: 20180227, end: 20180306
  145. CLOZAPINE [Suspect]
     Active Substance: CLOZAPINE
     Dosage: 12.5 MG
     Dates: start: 20180313, end: 20180326
  146. CLOZAPINE [Suspect]
     Active Substance: CLOZAPINE
     Dosage: 12.5 MG
     Dates: start: 20180409, end: 20180409
  147. CLOZAPINE [Suspect]
     Active Substance: CLOZAPINE
     Dosage: 150 MG
     Dates: start: 20180418, end: 20180423
  148. CLOZAPINE [Suspect]
     Active Substance: CLOZAPINE
     Indication: Schizoaffective disorder
     Dosage: 500 MG
     Dates: start: 20220412, end: 20220529
  149. CLOZAPINE [Suspect]
     Active Substance: CLOZAPINE
     Dosage: 12.5 MG
     Dates: start: 20220707, end: 20220710
  150. CLOZAPINE [Suspect]
     Active Substance: CLOZAPINE
     Dosage: 300 MG
     Dates: start: 20220711, end: 20220718
  151. CLOZAPINE [Suspect]
     Active Substance: CLOZAPINE
     Dosage: 450 MG
     Dates: start: 20220719, end: 20220726
  152. CLOZAPINE [Suspect]
     Active Substance: CLOZAPINE
     Dosage: 12.5 MG
     Dates: start: 20220817, end: 20220824
  153. CLOZAPINE [Suspect]
     Active Substance: CLOZAPINE
     Dosage: 150 MG
     Dates: start: 20220825, end: 20220831
  154. CLOZAPINE [Suspect]
     Active Substance: CLOZAPINE
     Dosage: 300 MG
     Dates: start: 20220901, end: 20220906
  155. CLOZAPINE [Suspect]
     Active Substance: CLOZAPINE
     Dosage: 400 MG
     Dates: start: 20220907, end: 20220913
  156. CLOZAPINE [Suspect]
     Active Substance: CLOZAPINE
     Dosage: 500 MG
     Dates: start: 20220914, end: 20220916
  157. CLOZAPINE [Suspect]
     Active Substance: CLOZAPINE
     Dosage: UNK
     Dates: start: 20220920, end: 20220921
  158. CLOZAPINE [Suspect]
     Active Substance: CLOZAPINE
     Dosage: 25 MG
     Dates: start: 20220922, end: 20221002
  159. CLOZAPINE [Suspect]
     Active Substance: CLOZAPINE
     Dosage: 300 MG
     Dates: start: 20221003, end: 20221013
  160. CLOZAPINE [Suspect]
     Active Substance: CLOZAPINE
     Dosage: 325 MG
     Dates: start: 20221014, end: 20221020
  161. CLOZAPINE [Suspect]
     Active Substance: CLOZAPINE
     Dosage: 350 MG
     Dates: start: 20221021, end: 20221027
  162. CLOZAPINE [Suspect]
     Active Substance: CLOZAPINE
     Dosage: 375 MG
     Dates: start: 20221028, end: 20221103
  163. CLOZAPINE [Suspect]
     Active Substance: CLOZAPINE
     Dosage: 425 MG
     Dates: start: 20221104, end: 20221116
  164. CLOZAPINE [Suspect]
     Active Substance: CLOZAPINE
     Dosage: 12.5 MG
     Dates: start: 20221206, end: 20221224
  165. CLOZAPINE [Suspect]
     Active Substance: CLOZAPINE
     Dosage: 550 MG
     Dates: start: 20230101, end: 20230131
  166. CLOZAPINE [Suspect]
     Active Substance: CLOZAPINE
     Dosage: 525 MG
     Dates: start: 20230201, end: 20230214
  167. CLOZAPINE [Suspect]
     Active Substance: CLOZAPINE
     Dosage: UNK
     Dates: start: 20230217, end: 20230218
  168. CLOZAPINE [Suspect]
     Active Substance: CLOZAPINE
     Dosage: 75 MG
     Dates: start: 20230219, end: 20230226
  169. CLOZAPINE [Suspect]
     Active Substance: CLOZAPINE
     Dosage: 175 MG
     Dates: start: 20230227, end: 20230302
  170. CLOZAPINE [Suspect]
     Active Substance: CLOZAPINE
     Dosage: 500 MG
     Dates: start: 20230303, end: 20230320
  171. CLOZAPINE [Suspect]
     Active Substance: CLOZAPINE
     Dosage: 487.5 MG
     Dates: start: 20230321, end: 20230420
  172. VALPROATE [Suspect]
     Active Substance: VALPROIC ACID
     Indication: Schizoaffective disorder
     Dosage: 2000 MG, NOCTE (AT NIGHT) (EVENING; WITH OR AFTER FOOD)
     Route: 048
  173. VALPROATE [Suspect]
     Active Substance: VALPROIC ACID
     Dosage: UNK
  174. MIRENA [Concomitant]
     Active Substance: LEVONORGESTREL
     Dosage: 1 DOSAGE FORM, ONCE ONLY
     Route: 015
     Dates: start: 202010
  175. LURASIDONE [Concomitant]
     Active Substance: LURASIDONE
     Dosage: 160 MG, NOCTE (AT NIGHT) (WITH OR AFTER FOOD)
     Route: 048
  176. ARIPIPRAZOLE [Concomitant]
     Active Substance: ARIPIPRAZOLE
     Dosage: 400 MG DEPOT, 1X/MONTH (EVERY 4 WEEKS)
     Route: 030
  177. OLANZAPINE [Concomitant]
     Active Substance: OLANZAPINE
     Dosage: 20 MG, NOCTE (AT NIGHT)
     Route: 048
  178. OLANZAPINE [Concomitant]
     Active Substance: OLANZAPINE
     Dosage: 10 MG, NOCTE (AT NIGHT) (WAFER FORM)
  179. OLANZAPINE [Concomitant]
     Active Substance: OLANZAPINE
     Dosage: 20 MG, NOCTE (AT NIGHT)
     Dates: start: 20230502, end: 20230515
  180. OLANZAPINE [Concomitant]
     Active Substance: OLANZAPINE
     Dosage: 10 MG, NOCTE (AT NIGHT) (WAFER)
     Route: 048
     Dates: start: 20230516
  181. ASCORBIC ACID\FERROUS SULFATE [Concomitant]
     Active Substance: ASCORBIC ACID\FERROUS SULFATE
     Dosage: 1 TABLETS, NOCTE (AT NIGHT)
     Route: 048
  182. HYDROXOCOBALAMIN [Concomitant]
     Active Substance: HYDROXOCOBALAMIN
     Dosage: 1 MG, 4X/YEAR (EVERY 3 MONTHS)
     Route: 030
     Dates: start: 20230224
  183. LACTULOSE [Concomitant]
     Active Substance: LACTULOSE
     Dosage: 20 ML, NOCTE (AT NIGHT)
     Route: 048
  184. LACTULOSE [Concomitant]
     Active Substance: LACTULOSE
     Dosage: ^DOSE DECREASED^ (ALSO REPORTED AS 20 ML DAILY AND 30 ML AT NIGHT)
     Route: 048
     Dates: start: 20230516
  185. LACTULOSE [Concomitant]
     Active Substance: LACTULOSE
     Dosage: UNK
  186. PANTOPRAZOLE [Concomitant]
     Active Substance: PANTOPRAZOLE
     Dosage: 20 MG, NOCTE (AT NIGHT)
     Route: 048

REACTIONS (25)
  - Cellulitis [Unknown]
  - Skin necrosis [Unknown]
  - Polydipsia psychogenic [Unknown]
  - Gestational diabetes [Recovered/Resolved]
  - Illness [Unknown]
  - Hospitalisation [Recovered/Resolved]
  - Hyponatraemic seizure [Unknown]
  - Rebound psychosis [Unknown]
  - Mental disorder [Unknown]
  - Malaise [Unknown]
  - Psychotic disorder [Unknown]
  - Mitral valve thickening [Unknown]
  - Pregnancy [Recovered/Resolved]
  - Maternal exposure before pregnancy [Recovered/Resolved]
  - Smear cervix abnormal [Unknown]
  - Emotional distress [Unknown]
  - Red cell distribution width increased [Not Recovered/Not Resolved]
  - Treatment noncompliance [Recovered/Resolved]
  - Drug screen positive [Not Recovered/Not Resolved]
  - Antipsychotic drug level increased [Recovering/Resolving]
  - Drug level above therapeutic [Not Recovered/Not Resolved]
  - Sedation [Unknown]
  - Overdose [Unknown]
  - Weight increased [Not Recovered/Not Resolved]
  - Product dose omission issue [Recovered/Resolved]

NARRATIVE: CASE EVENT DATE: 20100720
